FAERS Safety Report 13041253 (Version 1)
Quarter: 2016Q4

REPORT INFORMATION
  Report Type: Spontaneous
  Country: US (occurrence: US)
  Receive Date: 20161219
  Receipt Date: 20161219
  Transmission Date: 20170207
  Serious: No
  Sender: FDA-Public Use
  Company Number: US-AMNEAL PHARMACEUTICALS-2016AMN00462

PATIENT
  Sex: Male
  Weight: 81.63 kg

DRUGS (7)
  1. NEURONTIN [Concomitant]
     Active Substance: GABAPENTIN
     Indication: PAIN MANAGEMENT
     Dosage: INCREASED UP TO 3600 MG A DAY . IT WAS NOT WORKING
     Dates: start: 2012
  2. OXYCODONE AND ACETAMINOPHEN [Suspect]
     Active Substance: ACETAMINOPHEN\OXYCODONE HYDROCHLORIDE
     Indication: PAIN MANAGEMENT
     Dosage: 10 MG/ 325 MG STARTED 4 TIMES DAILY . NOW TAKE 2 TIMES A DAY
     Route: 048
     Dates: start: 20160726
  3. ZOHYDRO [Concomitant]
     Active Substance: HYDROCODONE BITARTRATE
     Dosage: UNK
  4. LYRICA [Concomitant]
     Active Substance: PREGABALIN
     Indication: PARAESTHESIA
  5. ZOHYDRO [Concomitant]
     Active Substance: HYDROCODONE BITARTRATE
     Indication: PAIN MANAGEMENT
     Dosage: UNK REGIMEN DOSE
  6. LYRICA [Concomitant]
     Active Substance: PREGABALIN
     Indication: NEURALGIA
  7. ELAVIL [Concomitant]
     Active Substance: AMITRIPTYLINE HYDROCHLORIDE
     Dosage: UNK DOSE AND IT DID NOT WORK FOR HIM

REACTIONS (4)
  - Neuralgia [Unknown]
  - Drug ineffective [Unknown]
  - Paraesthesia [Unknown]
  - Hypoaesthesia [Unknown]
